FAERS Safety Report 8556164 (Version 2)
Quarter: 2013Q2

REPORT INFORMATION
  Report Type: Spontaneous
  Country: US (occurrence: US)
  Receive Date: 20120510
  Receipt Date: 20130528
  Transmission Date: 20140414
  Serious: Yes (Hospitalization)
  Sender: FDA-Public Use
  Company Number: US-GLAXOSMITHKLINE-A0786237A

PATIENT
  Age: 54 Year
  Sex: Male

DRUGS (1)
  1. AVANDIA [Suspect]
     Indication: DIABETES MELLITUS
     Dosage: 8MG PER DAY
     Route: 048
     Dates: start: 20070219, end: 200710

REACTIONS (2)
  - Cerebrovascular accident [Unknown]
  - Myocardial infarction [Unknown]
